FAERS Safety Report 19443878 (Version 1)
Quarter: 2021Q2

REPORT INFORMATION
  Report Type: Spontaneous
  Country: US (occurrence: US)
  Receive Date: 20210621
  Receipt Date: 20210621
  Transmission Date: 20210717
  Serious: Yes (Death, Hospitalization)
  Sender: FDA-Public Use
  Company Number: US-GLAXOSMITHKLINE-USCH2021023604

PATIENT
  Age: 57 Year
  Sex: Female
  Weight: 73 kg

DRUGS (3)
  1. PRGN?2009 [Suspect]
     Active Substance: PRGN-2009
     Indication: CERVIX CARCINOMA
     Dosage: 5X10E11/PARTICLE UNITS/ML
     Route: 058
     Dates: start: 20210413, end: 20210413
  2. BINTRAFUSP ALFA. [Suspect]
     Active Substance: BINTRAFUSP ALFA
     Indication: CERVIX CARCINOMA
     Dosage: 1200 MG, Q2W
     Route: 042
     Dates: start: 20210413, end: 20210413
  3. IBUPROFEN. [Suspect]
     Active Substance: IBUPROFEN
     Indication: BACK PAIN
     Dosage: 500 MG
     Route: 048

REACTIONS (2)
  - Mucosal haemorrhage [Fatal]
  - Anaemia [Unknown]

NARRATIVE: CASE EVENT DATE: 20210423
